FAERS Safety Report 12524059 (Version 2)
Quarter: 2016Q3

REPORT INFORMATION
  Report Type: Spontaneous
  Country: US (occurrence: US)
  Receive Date: 20160704
  Receipt Date: 20160916
  Transmission Date: 20161109
  Serious: No
  Sender: FDA-Public Use
  Company Number: US-BIO PRODUCTS LABORATORY LTD-1054559

PATIENT
  Age: 46 Year
  Sex: Male

DRUGS (1)
  1. GAMMAPLEX [Suspect]
     Active Substance: HUMAN IMMUNOGLOBULIN G
     Route: 042
     Dates: start: 20160331, end: 20160601

REACTIONS (4)
  - Fall [Unknown]
  - Malaise [Unknown]
  - Headache [Unknown]
  - Muscular weakness [Unknown]
